FAERS Safety Report 9535775 (Version 6)
Quarter: 2014Q3

REPORT INFORMATION
  Report Type: Report from Study
  Country: FR (occurrence: FR)
  Receive Date: 20130919
  Receipt Date: 20140917
  Transmission Date: 20150326
  Serious: Yes (Death, Hospitalization)
  Sender: FDA-Public Use
  Company Number: FR-ROCHE-1276571

PATIENT
  Age: 51 Year
  Sex: Female

DRUGS (17)
  1. DIFFU-K [Concomitant]
     Active Substance: POTASSIUM CHLORIDE
     Route: 065
     Dates: start: 20130907
  2. FLUCONAZOLE. [Concomitant]
     Active Substance: FLUCONAZOLE
  3. DACLATASVIR [Suspect]
     Active Substance: DACLATASVIR
     Indication: HEPATITIS C
     Route: 048
     Dates: start: 20130603, end: 20131019
  4. VITAMIN D3 [Concomitant]
     Active Substance: CHOLECALCIFEROL
     Route: 065
     Dates: start: 20100916
  5. PEGINTERFERON ALFA-2A [Suspect]
     Active Substance: PEGINTERFERON ALFA-2A
     Route: 058
     Dates: start: 20130830, end: 20131019
  6. NEORECORMON [Concomitant]
     Active Substance: ERYTHROPOIETIN
     Route: 065
     Dates: start: 20130731
  7. ISENTRESS [Concomitant]
     Active Substance: RALTEGRAVIR POTASSIUM
     Route: 065
     Dates: start: 20130122
  8. PEGINTERFERON ALFA-2A [Suspect]
     Active Substance: PEGINTERFERON ALFA-2A
     Indication: HEPATITIS C
     Route: 058
     Dates: start: 20130506, end: 20130829
  9. ASUNAPREVIR [Suspect]
     Active Substance: ASUNAPREVIR
     Indication: HEPATITIS C
     Route: 048
     Dates: start: 20130603, end: 20131019
  10. TAHOR [Concomitant]
     Active Substance: ATORVASTATIN CALCIUM
     Route: 065
     Dates: start: 20121204
  11. RIBAVIRIN. [Suspect]
     Active Substance: RIBAVIRIN
     Indication: HEPATITIS C
     Route: 048
     Dates: start: 20130506, end: 20130829
  12. RIBAVIRIN. [Suspect]
     Active Substance: RIBAVIRIN
     Route: 048
     Dates: start: 20130830, end: 20131019
  13. DOLIPRANE [Concomitant]
     Active Substance: ACETAMINOPHEN
     Route: 065
     Dates: start: 20130830
  14. VALACICLOVIR [Concomitant]
     Active Substance: VALACYCLOVIR HYDROCHLORIDE
  15. VENTOLINE [Concomitant]
     Active Substance: ALBUTEROL
     Route: 065
     Dates: start: 20130823
  16. IMIQUIMOD. [Concomitant]
     Active Substance: IMIQUIMOD
     Route: 065
     Dates: start: 20120312
  17. TRUVADA [Concomitant]
     Active Substance: EMTRICITABINE\TENOFOVIR DISOPROXIL FUMARATE
     Route: 065
     Dates: start: 20130122

REACTIONS (8)
  - Cardiac arrest [Fatal]
  - Dehydration [Unknown]
  - Epilepsy [Not Recovered/Not Resolved]
  - Intracranial haematoma [Unknown]
  - Anaemia [Unknown]
  - Lung abscess [Fatal]
  - Respiratory distress [Fatal]
  - Renal failure [Unknown]

NARRATIVE: CASE EVENT DATE: 20130828
